FAERS Safety Report 4633605-3 (Version None)
Quarter: 2005Q2

REPORT INFORMATION
  Report Type: 
  Country: None (occurrence: None)
  Receive Date: 20050412
  Receipt Date: 20050412
  Transmission Date: 20051028
  Serious: Yes (Hospitalization)
  Sender: FDA-Public Use
  Company Number: None

PATIENT
  Age: 63 Year
  Sex: Male
  Weight: 95.7 kg

DRUGS (1)
  1. DEXAMETHASONE [Suspect]

REACTIONS (1)
  - HYPERGLYCAEMIA [None]
